FAERS Safety Report 20057869 (Version 2)
Quarter: 2022Q2

REPORT INFORMATION
  Report Type: Spontaneous
  Country: US (occurrence: US)
  Receive Date: 20211111
  Receipt Date: 20220425
  Transmission Date: 20220721
  Serious: Yes (Other)
  Sender: FDA-Public Use
  Company Number: ALC2021US006080

PATIENT
  Sex: Male

DRUGS (1)
  1. BSS PLUS [Suspect]
     Active Substance: CALCIUM CHLORIDE\DEXTROSE\MAGNESIUM CHLORIDE\OXIGLUTATIONE\POTASSIUM CHLORIDE\SODIUM BICARBONATE\SOD
     Indication: Vitrectomy
     Dosage: UNK
     Route: 065
     Dates: start: 20211025

REACTIONS (4)
  - Toxic anterior segment syndrome [Recovering/Resolving]
  - Procedural pain [Recovering/Resolving]
  - Nausea [Recovering/Resolving]
  - Vomiting [Recovering/Resolving]

NARRATIVE: CASE EVENT DATE: 20211026
